FAERS Safety Report 8942688 (Version 1)
Quarter: 2012Q4

REPORT INFORMATION
  Report Type: 
  Country: DE (occurrence: DE)
  Receive Date: 20121204
  Receipt Date: 20121204
  Transmission Date: 20130627
  Serious: Yes (Other)
  Sender: FDA-Public Use
  Company Number: DE-PFIZER INC-2012297265

PATIENT
  Age: 55 Year
  Sex: Female

DRUGS (1)
  1. TOLTERODIN PFIZER [Suspect]
     Dosage: 2 mg, 2x/day

REACTIONS (2)
  - Convulsion [Unknown]
  - Dysuria [Unknown]
